FAERS Safety Report 6649295-4 (Version None)
Quarter: 2010Q1

REPORT INFORMATION
  Report Type: 
  Country: None (occurrence: None)
  Receive Date: 20100324
  Receipt Date: 20100311
  Transmission Date: 20100710
  Serious: Yes (Other)
  Sender: FDA-Public Use
  Company Number: PHEH2008US09016

PATIENT
  Sex: Female
  Weight: 82.086 kg

DRUGS (50)
  1. AREDIA [Suspect]
     Dosage: 90MG
     Dates: start: 20040324, end: 20070326
  2. CHEMOTHERAPEUTICS NOS [Concomitant]
  3. BLOOD TRANSFUSION, AUXILIARY PRODUCTS [Concomitant]
  4. ALEVE [Concomitant]
     Dosage: UNK
     Route: 048
  5. ACIPHEX [Concomitant]
     Dosage: UNK
     Route: 048
  6. ZOLOFT [Concomitant]
     Dosage: UNK
     Route: 048
  7. MECLIZINE [Concomitant]
     Dosage: UNK
     Route: 048
  8. ACTOS [Concomitant]
     Dosage: UNK
     Route: 048
  9. CELEBREX [Concomitant]
     Dosage: UNK
     Route: 048
  10. LORTAB [Concomitant]
     Dosage: UNK
     Route: 048
  11. HUMALOG [Concomitant]
     Dosage: UNK
     Route: 058
  12. LANTUS [Concomitant]
     Dosage: UNK
     Route: 058
  13. GLYBURIDE [Concomitant]
     Dosage: UNK
     Route: 048
  14. LOVASTATIN [Concomitant]
     Dosage: UNK
     Route: 048
  15. ARANESP [Concomitant]
     Dosage: UNK
  16. NEURONTIN [Concomitant]
     Dosage: UNK
     Route: 048
  17. DECADRON [Concomitant]
     Dosage: UNK
  18. LEUKERAN [Concomitant]
     Dosage: UNK
  19. PREDNISONE [Concomitant]
     Dosage: UNK
  20. CEFTIN [Concomitant]
     Dosage: UNK
  21. GLUCOVANCE [Concomitant]
     Dosage: UNK
  22. COUMADIN [Concomitant]
     Route: 048
  23. AMOXICILLIN [Concomitant]
     Dosage: UNK
     Route: 048
  24. AMBIEN [Concomitant]
     Dosage: UNK
     Route: 048
  25. PROZAC [Concomitant]
     Dosage: UNK
     Route: 048
  26. THALIDOMIDE [Concomitant]
     Dosage: UNK
     Route: 048
  27. RESTORIL [Concomitant]
     Dosage: UNK
     Route: 048
  28. MELPHALAN HYDROCHLORIDE [Concomitant]
     Dosage: UNK
  29. XANAX [Concomitant]
     Dosage: UNK
     Route: 048
  30. NEXIUM [Concomitant]
     Dosage: UNK
     Route: 048
  31. ADRIABLASTIN + VCR + DACARBAZINE [Concomitant]
     Dosage: 15 MG, UNK
  32. ZOFRAN [Concomitant]
     Dosage: 32 MG, UNK
  33. PROCRIT                            /00909301/ [Concomitant]
     Dosage: UNK
  34. DEXAMETHASONE [Concomitant]
     Dosage: 20 MG, QW
  35. VELCADE [Concomitant]
     Dosage: UNK
  36. ZITHROMAX [Concomitant]
     Dosage: UNK
     Dates: start: 20060111
  37. CEFOTAN [Concomitant]
  38. MORPHINE SULFATE [Concomitant]
  39. SUBLIMAZE PRESERVATIVE FREE [Concomitant]
  40. PEPCID [Concomitant]
  41. NOVOLIN [Concomitant]
  42. BREVIBLOC [Concomitant]
  43. ETOMIDATE [Concomitant]
  44. NEOSTIGMINE [Concomitant]
  45. ROBINUL [Concomitant]
  46. ACETAMINOPHEN [Concomitant]
  47. LOVENOX [Concomitant]
  48. LASIX [Concomitant]
  49. COMPAZINE [Concomitant]
  50. FENTANYL [Concomitant]

REACTIONS (32)
  - ABDOMINAL PAIN [None]
  - ADNEXA UTERI MASS [None]
  - ANAEMIA [None]
  - ANHEDONIA [None]
  - ANXIETY [None]
  - ARTHRALGIA [None]
  - BALANCE DISORDER [None]
  - BONE DISORDER [None]
  - CONTUSION [None]
  - DEEP VEIN THROMBOSIS [None]
  - DEPRESSION [None]
  - DISABILITY [None]
  - DIZZINESS [None]
  - EAR INFECTION [None]
  - EXCORIATION [None]
  - FALL [None]
  - HIATUS HERNIA [None]
  - HYPERGLYCAEMIA [None]
  - HYPOGLYCAEMIA [None]
  - HYSTERECTOMY [None]
  - INJURY [None]
  - JOINT SPRAIN [None]
  - ORAL DISORDER [None]
  - ORAL SURGERY [None]
  - OSTEONECROSIS [None]
  - OVARIAN MASS [None]
  - PAIN [None]
  - RED BLOOD CELL ABNORMALITY [None]
  - SPONDYLOLISTHESIS [None]
  - THROMBOCYTOPENIA [None]
  - TOOTH FRACTURE [None]
  - UPPER RESPIRATORY TRACT INFECTION [None]
